FAERS Safety Report 25069792 (Version 3)
Quarter: 2025Q2

REPORT INFORMATION
  Report Type: Spontaneous
  Country: US (occurrence: US)
  Receive Date: 20250312
  Receipt Date: 20250503
  Transmission Date: 20250717
  Serious: Yes (Life-Threatening, Hospitalization, Other)
  Sender: NOVARTIS
  Company Number: US-002147023-NVSC2025US041728

PATIENT
  Age: 53 Year
  Sex: Female

DRUGS (2)
  1. ASCIMINIB [Suspect]
     Active Substance: ASCIMINIB
     Indication: Chronic myeloid leukaemia
     Dosage: 80 MG, QD (CAPSULE)
     Route: 065
     Dates: start: 202404, end: 202410
  2. ASCIMINIB [Suspect]
     Active Substance: ASCIMINIB
     Route: 048
     Dates: start: 20240311, end: 20250303

REACTIONS (5)
  - Hypertension [Recovering/Resolving]
  - Hemiparesis [Recovering/Resolving]
  - Facial paralysis [Unknown]
  - Dysarthria [Unknown]
  - Dysphemia [Unknown]

NARRATIVE: CASE EVENT DATE: 20250301
